FAERS Safety Report 24239919 (Version 2)
Quarter: 2024Q3

REPORT INFORMATION
  Report Type: Spontaneous
  Country: US (occurrence: US)
  Receive Date: 20240822
  Receipt Date: 20240828
  Transmission Date: 20241017
  Serious: No
  Sender: BIOMARIN
  Company Number: US-SA-SAC20240819000519

PATIENT

DRUGS (1)
  1. LARONIDASE [Suspect]
     Active Substance: LARONIDASE
     Indication: Mucopolysaccharidosis I
     Dosage: 42 (UNITS NOT PROVIDED), QW
     Route: 041
     Dates: start: 200502

REACTIONS (1)
  - No adverse event [Unknown]
